FAERS Safety Report 18820413 (Version 1)
Quarter: 2021Q1

REPORT INFORMATION
  Report Type: Spontaneous
  Country: US (occurrence: US)
  Receive Date: 20210201
  Receipt Date: 20210201
  Transmission Date: 20210419
  Serious: Yes (Other)
  Sender: FDA-Public Use
  Company Number: None

PATIENT
  Age: 63 Year
  Sex: Male

DRUGS (2)
  1. CHLORHEXIDINE GLUCONATE ORAL RINSE, 0.12% [Suspect]
     Active Substance: CHLORHEXIDINE GLUCONATE
     Indication: ANTIBIOTIC PROPHYLAXIS
     Dosage: ?          OTHER ROUTE:SWISH AND SPIT?
     Dates: start: 20200821, end: 20201101
  2. CHLORHEXIDINE GLUCONATE ORAL RINSE, 0.12% [Suspect]
     Active Substance: CHLORHEXIDINE GLUCONATE
     Indication: ANTIBIOTIC PROPHYLAXIS
     Dosage: ?          OTHER ROUTE:SWISH AND SPIT?
     Dates: start: 20201108, end: 20201118

REACTIONS (11)
  - Bronchopulmonary aspergillosis [None]
  - Atrial fibrillation [None]
  - Recalled product [None]
  - Staphylococcus test positive [None]
  - Encephalopathy [None]
  - Renal failure [None]
  - Hypoxia [None]
  - Haemodialysis [None]
  - Suspected transmission of an infectious agent via product [None]
  - Burkholderia test positive [None]
  - Pneumonia [None]

NARRATIVE: CASE EVENT DATE: 20200912
